FAERS Safety Report 19190412 (Version 2)
Quarter: 2021Q2

REPORT INFORMATION
  Report Type: Spontaneous
  Country: US (occurrence: US)
  Receive Date: 20210428
  Receipt Date: 20210630
  Transmission Date: 20210717
  Serious: No
  Sender: FDA-Public Use
  Company Number: US-KYOWAKIRIN-2021BKK006578

PATIENT

DRUGS (2)
  1. NOURIANZ [Suspect]
     Active Substance: ISTRADEFYLLINE
     Indication: DEMENTIA
  2. NOURIANZ [Suspect]
     Active Substance: ISTRADEFYLLINE
     Indication: GAIT DISTURBANCE
     Dosage: 20 MG, ONCE DAILY (EVERY MORNING)
     Route: 048
     Dates: start: 20210225

REACTIONS (2)
  - Fatigue [Unknown]
  - Product use in unapproved indication [Not Recovered/Not Resolved]

NARRATIVE: CASE EVENT DATE: 20210225
